FAERS Safety Report 25797385 (Version 2)
Quarter: 2025Q4

REPORT INFORMATION
  Report Type: Spontaneous
  Country: AU (occurrence: AU)
  Receive Date: 20250912
  Receipt Date: 20251017
  Transmission Date: 20260117
  Serious: Yes (Other)
  Sender: MERCK SHARP & DOHME LLC
  Company Number: AU-GENERIC HEALTH PTY. LTD.-2025- 00952

PATIENT
  Age: 43 Year
  Sex: Male

DRUGS (1)
  1. TEMOZOLOMIDE [Suspect]
     Active Substance: TEMOZOLOMIDE
     Indication: Glioblastoma
     Dosage: DOSE FORM: UNKNOWN; INTERVAL: 1 DAY; ROUTE OF ADMINISTRATION: INFORMATION NOT PROVIDED
     Route: 065

REACTIONS (1)
  - Herpes zoster [Unknown]
